FAERS Safety Report 8962680 (Version 3)
Quarter: 2013Q3

REPORT INFORMATION
  Report Type: Spontaneous
  Country: GB (occurrence: GB)
  Receive Date: 20121214
  Receipt Date: 20130722
  Transmission Date: 20140515
  Serious: Yes (Other)
  Sender: FDA-Public Use
  Company Number: PHFR2012GB005833

PATIENT
  Age: 41 Year
  Sex: Male

DRUGS (2)
  1. CLOZARIL [Suspect]
     Dosage: UNK
     Route: 048
     Dates: start: 20050915
  2. CLOZARIL [Suspect]
     Dosage: UNK (MORE THAN 500 MG DAILY)

REACTIONS (4)
  - Chest X-ray abnormal [Unknown]
  - Lymphoma [Unknown]
  - General physical health deterioration [Unknown]
  - Haemoglobin decreased [Unknown]
